FAERS Safety Report 14051370 (Version 1)
Quarter: 2017Q4

REPORT INFORMATION
  Report Type: Report from Study
  Country: US (occurrence: US)
  Receive Date: 20171005
  Receipt Date: 20171005
  Transmission Date: 20180321
  Serious: No
  Sender: FDA-Public Use
  Company Number: US-AMGEN-USASL2016162737

PATIENT
  Age: 74 Year
  Sex: Female
  Weight: 60.32 kg

DRUGS (10)
  1. PROLIA [Suspect]
     Active Substance: DENOSUMAB
     Indication: BONE DENSITY ABNORMAL
     Dosage: UNK
     Route: 058
  2. VITAMINS [Concomitant]
     Active Substance: VITAMINS
  3. PROLIA [Suspect]
     Active Substance: DENOSUMAB
     Indication: OSTEOPOROSIS
     Dosage: 60 MG/ML, Q6MO
     Route: 058
     Dates: start: 20150915
  4. CHONDROITIN [Concomitant]
     Active Substance: CHONDROITIN
  5. IBUPROFEN. [Concomitant]
     Active Substance: IBUPROFEN
  6. CALCIUM [Concomitant]
     Active Substance: CALCIUM
  7. VOLTAREN [Concomitant]
     Active Substance: DICLOFENAC SODIUM
  8. GLUCOSAMINE [Concomitant]
     Active Substance: GLUCOSAMINE
  9. ZINC. [Concomitant]
     Active Substance: ZINC
  10. MAGNESIUM [Concomitant]
     Active Substance: MAGNESIUM

REACTIONS (6)
  - Muscle strain [Unknown]
  - Nerve compression [Unknown]
  - Corrective lens user [Unknown]
  - Pain in extremity [Unknown]
  - Arthritis [Unknown]
  - Neuralgia [Unknown]
